FAERS Safety Report 9490927 (Version 1)
Quarter: 2013Q3

REPORT INFORMATION
  Report Type: Spontaneous
  Country: PT (occurrence: PT)
  Receive Date: 20130830
  Receipt Date: 20130830
  Transmission Date: 20140515
  Serious: Yes (Other)
  Sender: FDA-Public Use
  Company Number: PT-009507513-1308PRT014060

PATIENT
  Age: 2 Year
  Sex: Female
  Weight: 11 kg

DRUGS (2)
  1. SINGULAIR [Suspect]
     Indication: DYSPNOEA
     Dosage: 4 MG, QD
     Route: 048
     Dates: start: 20130801, end: 20130814
  2. ZYRTEC [Concomitant]
     Indication: DYSPNOEA
     Dosage: 2. MG, QD
     Route: 048
     Dates: start: 20130801, end: 20130801

REACTIONS (9)
  - Dysaesthesia [Recovered/Resolved]
  - Haematochezia [Recovered/Resolved]
  - Haematochezia [Recovered/Resolved]
  - Epistaxis [Recovered/Resolved]
  - Psychomotor hyperactivity [Recovered/Resolved]
  - Screaming [Recovered/Resolved]
  - Agitation [Recovered/Resolved]
  - Mood altered [Recovered/Resolved]
  - Hyperhidrosis [Recovered/Resolved]
